FAERS Safety Report 19580129 (Version 2)
Quarter: 2021Q4

REPORT INFORMATION
  Report Type: Other
  Country: US (occurrence: None)
  Receive Date: 20210719
  Receipt Date: 20211210
  Transmission Date: 20220304
  Serious: Yes (Hospitalization, Other)
  Sender: FDA-Public Use
  Company Number: US-ROCHE-2869855

PATIENT
  Sex: Female
  Weight: 86.260 kg

DRUGS (8)
  1. OCREVUS [Suspect]
     Active Substance: OCRELIZUMAB
     Indication: Primary progressive multiple sclerosis
     Dosage: DATE OF TREATMENT: 04/MAR/2019, 21/AUG/2019, 11/FEB/2020, 12/JUL/2020, 07/DEC/2020
     Route: 042
     Dates: start: 20190218
  2. OCREVUS [Suspect]
     Active Substance: OCRELIZUMAB
     Route: 042
     Dates: start: 20210507
  3. OCREVUS [Suspect]
     Active Substance: OCRELIZUMAB
     Route: 042
  4. ROPINIROLE [Concomitant]
     Active Substance: ROPINIROLE
  5. BENADRYL [Concomitant]
     Active Substance: DIPHENHYDRAMINE HYDROCHLORIDE
     Route: 048
  6. BENADRYL [Concomitant]
     Active Substance: DIPHENHYDRAMINE HYDROCHLORIDE
     Route: 048
  7. TOPIRAMATE [Concomitant]
     Active Substance: TOPIRAMATE
     Indication: Migraine
  8. CELEXA [Concomitant]
     Active Substance: CITALOPRAM HYDROBROMIDE

REACTIONS (22)
  - Oesophageal disorder [Not Recovered/Not Resolved]
  - Aspiration [Not Recovered/Not Resolved]
  - Skin lesion [Not Recovered/Not Resolved]
  - Malaise [Unknown]
  - Chest pain [Unknown]
  - Skin laceration [Unknown]
  - Skin fissures [Unknown]
  - Pruritus [Unknown]
  - Haemorrhage [Unknown]
  - Cognitive disorder [Unknown]
  - General physical health deterioration [Unknown]
  - Weight decreased [Unknown]
  - Feeding disorder [Unknown]
  - Pneumonia [Unknown]
  - Disorientation [Unknown]
  - Chest discomfort [Not Recovered/Not Resolved]
  - Amnesia [Not Recovered/Not Resolved]
  - Weight increased [Unknown]
  - Multiple sclerosis [Unknown]
  - Fall [Recovered/Resolved]
  - Somnolence [Not Recovered/Not Resolved]
  - Dizziness [Recovered/Resolved]

NARRATIVE: CASE EVENT DATE: 20210101
